FAERS Safety Report 5086109-0 (Version None)
Quarter: 2006Q3

REPORT INFORMATION
  Report Type: 
  Country: None (occurrence: None)
  Receive Date: 20060818
  Receipt Date: 20060731
  Transmission Date: 20061208
  Serious: Yes (Death)
  Sender: FDA-Public Use
  Company Number: JP200607004442

PATIENT
  Sex: Male

DRUGS (2)
  1. ZYPREXA [Suspect]
     Dosage: 140 MG, ORAL
     Route: 048
  2. PAXIL [Concomitant]

REACTIONS (1)
  - MULTIPLE DRUG OVERDOSE [None]
